FAERS Safety Report 16430289 (Version 1)
Quarter: 2019Q2

REPORT INFORMATION
  Report Type: Spontaneous
  Country: GB (occurrence: GB)
  Receive Date: 20190614
  Receipt Date: 20190614
  Transmission Date: 20190711
  Serious: Yes (Hospitalization)
  Sender: FDA-Public Use
  Company Number: GB-ACCORD-132990

PATIENT
  Age: 60 Year
  Sex: Female
  Weight: 49.4 kg

DRUGS (21)
  1. NEBIVOLOL. [Concomitant]
     Active Substance: NEBIVOLOL
  2. NICOTINE. [Concomitant]
     Active Substance: NICOTINE
  3. RAMIPRIL. [Suspect]
     Active Substance: RAMIPRIL
     Indication: CARDIAC FAILURE CONGESTIVE
     Route: 048
     Dates: start: 20180801, end: 20190423
  4. SPIRONOLACTONE. [Suspect]
     Active Substance: SPIRONOLACTONE
     Indication: CARDIAC FAILURE CONGESTIVE
     Dosage: IN THE MORNING
     Route: 048
     Dates: start: 20180801, end: 20190423
  5. PARACETAMOL [Concomitant]
     Active Substance: ACETAMINOPHEN
  6. SALBUTAMOL [Concomitant]
     Active Substance: ALBUTEROL
  7. CODEINE [Concomitant]
     Active Substance: CODEINE
  8. FLUCLOXACILLIN [Concomitant]
     Active Substance: FLUCLOXACILLIN
  9. MONTELUKAST [Concomitant]
     Active Substance: MONTELUKAST SODIUM
  10. MEBEVERINE [Concomitant]
     Active Substance: MEBEVERINE
  11. AMITRIPTYLINE [Concomitant]
     Active Substance: AMITRIPTYLINE
  12. ALENDRONATE SODIUM/ALENDRONIC ACID [Concomitant]
  13. FUROSEMIDE. [Suspect]
     Active Substance: FUROSEMIDE
     Indication: CARDIAC FAILURE CONGESTIVE
     Dosage: IN THE MORNING
     Route: 048
     Dates: start: 20180801, end: 20190423
  14. ALVERINE [Concomitant]
     Active Substance: ALVERINE
  15. COLECALCIFEROL [Concomitant]
     Active Substance: CHOLECALCIFEROL
  16. BRIVARACETAM [Concomitant]
     Active Substance: BRIVARACETAM
  17. IVABRADINE/IVABRADINE HYDROCHLORIDE [Concomitant]
  18. ACCRETE D3 [Concomitant]
     Active Substance: CALCIUM CARBONATE\CHOLECALCIFEROL
  19. DOXYCYCLINE. [Concomitant]
     Active Substance: DOXYCYCLINE
  20. TRELEGY ELLIPTA [Concomitant]
     Active Substance: FLUTICASONE FUROATE\UMECLIDINIUM BROMIDE\VILANTEROL TRIFENATATE
  21. PREDNISOLONE. [Concomitant]
     Active Substance: PREDNISOLONE

REACTIONS (6)
  - Malaise [Unknown]
  - Lethargy [Unknown]
  - Hypotension [Recovering/Resolving]
  - Syncope [Unknown]
  - Decreased appetite [Unknown]
  - Sepsis [Unknown]

NARRATIVE: CASE EVENT DATE: 20190422
